FAERS Safety Report 8236891-6 (Version None)
Quarter: 2012Q1

REPORT INFORMATION
  Report Type: 
  Country: None (occurrence: None)
  Receive Date: 20120327
  Receipt Date: 20110621
  Transmission Date: 20120608
  Serious: No
  Sender: FDA-Public Use
  Company Number: US-GLAXOSMITHKLINE-A0932223A

PATIENT
  Age: 64 Year
  Sex: Female

DRUGS (1)
  1. LUXIQ [Suspect]
     Indication: DERMATITIS
     Dosage: 1APP PER DAY
     Route: 061
     Dates: start: 20110601

REACTIONS (1)
  - BURNING SENSATION [None]
